FAERS Safety Report 14518801 (Version 2)
Quarter: 2018Q1

REPORT INFORMATION
  Report Type: Report from Study
  Country: US (occurrence: US)
  Receive Date: 20180212
  Receipt Date: 20180314
  Transmission Date: 20180509
  Serious: Yes (Hospitalization)
  Sender: FDA-Public Use
  Company Number: US-BIOGEN-2018BI00519951

PATIENT
  Sex: Female

DRUGS (2)
  1. TYSABRI [Suspect]
     Active Substance: NATALIZUMAB
     Indication: MULTIPLE SCLEROSIS
     Route: 042
     Dates: start: 20101018, end: 20111018
  2. TYSABRI [Suspect]
     Active Substance: NATALIZUMAB
     Route: 042
     Dates: start: 20120216

REACTIONS (5)
  - Stubbornness [Recovered/Resolved]
  - Fall [Recovered/Resolved]
  - Ulcer haemorrhage [Unknown]
  - Multiple sclerosis [Recovered/Resolved]
  - Overweight [Recovered/Resolved]
